FAERS Safety Report 19108732 (Version 4)
Quarter: 2022Q2

REPORT INFORMATION
  Report Type: Spontaneous
  Country: US (occurrence: US)
  Receive Date: 20210408
  Receipt Date: 20220419
  Transmission Date: 20220721
  Serious: No
  Sender: FDA-Public Use
  Company Number: US-AMGEN INC.-USASP2021053047

PATIENT
  Age: 50 Year
  Sex: Male

DRUGS (3)
  1. AIMOVIG [Suspect]
     Active Substance: ERENUMAB-AOOE
     Indication: Migraine prophylaxis
     Dosage: 70 MILLIGRAM
     Route: 065
     Dates: start: 2019, end: 202009
  2. AIMOVIG [Suspect]
     Active Substance: ERENUMAB-AOOE
     Indication: Post concussion syndrome
     Dosage: 140 MILLIGRAM, QMO
     Route: 065
     Dates: start: 20210406
  3. AIMOVIG [Suspect]
     Active Substance: ERENUMAB-AOOE
     Dosage: 140 MILLIGRAM, QMO
     Route: 065
     Dates: start: 202104

REACTIONS (6)
  - Accidental exposure to product [Unknown]
  - Incorrect dose administered by device [Unknown]
  - Product storage error [Unknown]
  - Wrong technique in product usage process [Unknown]
  - Device difficult to use [Unknown]
  - Drug dose omission by device [Unknown]

NARRATIVE: CASE EVENT DATE: 20210406
